FAERS Safety Report 5534551-3 (Version None)
Quarter: 2007Q4

REPORT INFORMATION
  Report Type: 
  Country: None (occurrence: None)
  Receive Date: 20071204
  Receipt Date: 20071204
  Transmission Date: 20080405
  Serious: Yes (Hospitalization)
  Sender: FDA-Public Use
  Company Number: None

PATIENT
  Age: 35 Year
  Sex: Female

DRUGS (2)
  1. IBUPROFEN [Suspect]
     Indication: ANALGESIA
     Dosage: 600MG ONCE PO
     Route: 048
     Dates: start: 20070716, end: 20070716
  2. INHALER [Concomitant]

REACTIONS (6)
  - EYE SWELLING [None]
  - HYPOTENSION [None]
  - LACRIMATION INCREASED [None]
  - PHARYNGEAL OEDEMA [None]
  - SWELLING FACE [None]
  - SWOLLEN TONGUE [None]
